FAERS Safety Report 8967698 (Version 3)
Quarter: 2013Q1

REPORT INFORMATION
  Report Type: Spontaneous
  Country: CN (occurrence: None)
  Receive Date: 20121210
  Receipt Date: 20121210
  Transmission Date: 20140127
  Serious: No
  Sender: FDA-Public Use
  Company Number: 7179295

PATIENT
  Age: 26 Year
  Sex: Female

DRUGS (1)
  1. EUTHYROX [Suspect]
     Indication: HYPOTHYROIDISM
     Dosage: 1 TO 0.5 TABLET
     Route: 048
     Dates: start: 201009

REACTIONS (2)
  - Abortion spontaneous [None]
  - Exposure during pregnancy [None]
